FAERS Safety Report 25271072 (Version 2)
Quarter: 2025Q2

REPORT INFORMATION
  Report Type: Spontaneous
  Country: US (occurrence: US)
  Receive Date: 20250506
  Receipt Date: 20250521
  Transmission Date: 20250716
  Serious: Yes (Other)
  Sender: ROCHE
  Company Number: US-ROCHE-10000271182

PATIENT
  Age: 65 Year
  Sex: Female
  Weight: 81.65 kg

DRUGS (9)
  1. XOLAIR [Suspect]
     Active Substance: OMALIZUMAB
     Indication: Chronic spontaneous urticaria
     Dosage: NOT ONGOING
     Route: 058
     Dates: start: 20221005
  2. XOLAIR [Suspect]
     Active Substance: OMALIZUMAB
     Dosage: ONCE EVERY 5-6 WEEKS, ONGOING, LAST DOSE 24-?MAR-2025
     Route: 058
  3. BACTRIM [Suspect]
     Active Substance: SULFAMETHOXAZOLE\TRIMETHOPRIM
     Indication: Product used for unknown indication
     Route: 048
  4. ELIQUIS [Concomitant]
     Active Substance: APIXABAN
     Indication: Atrial fibrillation
     Route: 048
     Dates: start: 20250419
  5. ELIQUIS [Concomitant]
     Active Substance: APIXABAN
     Indication: Thrombosis prophylaxis
  6. METOPROLOL [Concomitant]
     Active Substance: METOPROLOL
     Indication: Atrial fibrillation
     Route: 048
     Dates: start: 20250419
  7. METOPROLOL [Concomitant]
     Active Substance: METOPROLOL
     Indication: Heart rate decreased
  8. ALLEGRA [Concomitant]
     Active Substance: FEXOFENADINE HYDROCHLORIDE
     Indication: Hypersensitivity
     Route: 048
  9. PEPCID [Concomitant]
     Active Substance: FAMOTIDINE

REACTIONS (9)
  - Inappropriate schedule of product administration [Unknown]
  - Off label use [Unknown]
  - Anaphylactic reaction [Recovered/Resolved]
  - Atrial fibrillation [Recovered/Resolved]
  - Erythema [Recovered/Resolved]
  - Pruritus [Recovered/Resolved]
  - Drug eruption [Unknown]
  - Cellulitis [Recovered/Resolved]
  - Urticaria [Recovered/Resolved]

NARRATIVE: CASE EVENT DATE: 20240701
